FAERS Safety Report 17632064 (Version 2)
Quarter: 2020Q2

REPORT INFORMATION
  Report Type: Report from Study
  Country: BR (occurrence: BR)
  Receive Date: 20200406
  Receipt Date: 20200521
  Transmission Date: 20200713
  Serious: Yes (Hospitalization, Other)
  Sender: FDA-Public Use
  Company Number: BR-ASTRAZENECA-2020SE47536

PATIENT
  Sex: Female
  Weight: 7.7 kg

DRUGS (2)
  1. SYNAGIS [Suspect]
     Active Substance: PALIVIZUMAB
     Indication: HEART DISEASE CONGENITAL
     Dosage: 5 UNSPECIFIED DOSES EVERY 30 DAYS
     Route: 030
     Dates: start: 20190601
  2. SYNAGIS [Suspect]
     Active Substance: PALIVIZUMAB
     Indication: HEART DISEASE CONGENITAL
     Dosage: 5 UNSPECIFIED DOSES EVERY 30 DAYS
     Route: 030
     Dates: start: 20200326, end: 20200428

REACTIONS (4)
  - Inflammation [Unknown]
  - Pneumoperitoneum [Unknown]
  - Intestinal obstruction [Recovering/Resolving]
  - Weight decreased [Unknown]
